FAERS Safety Report 7064416-X (Version None)
Quarter: 2010Q4

REPORT INFORMATION
  Report Type: 
  Country: None (occurrence: None)
  Receive Date: 20101027
  Receipt Date: 20101014
  Transmission Date: 20110411
  Serious: Yes (Other)
  Sender: FDA-Public Use
  Company Number: PHHY2010CA69454

PATIENT
  Sex: Male

DRUGS (1)
  1. CLOZARIL [Suspect]
     Dosage: UNK
     Dates: start: 20100830, end: 20101012

REACTIONS (3)
  - CHOKING SENSATION [None]
  - DYSPNOEA [None]
  - PSYCHOTIC DISORDER [None]
